FAERS Safety Report 4938534-3 (Version None)
Quarter: 2006Q1

REPORT INFORMATION
  Report Type: 
  Country: None (occurrence: None)
  Receive Date: 20060302
  Receipt Date: 20060216
  Transmission Date: 20060701
  Serious: Yes (Hospitalization)
  Sender: FDA-Public Use
  Company Number: HQWYE739909FEB06

PATIENT
  Age: 48 Year
  Sex: Male

DRUGS (1)
  1. TIGECYCLINE (TYGECYCLINE, INJECTION) [Suspect]
     Indication: ABDOMINAL INFECTION
     Dosage: 100 MG LOADING DOSE FOLLOWED BY 50 MG TWICE DAILY UNKNOWN
     Route: 065
     Dates: start: 20060123, end: 20060130

REACTIONS (1)
  - INTESTINAL OBSTRUCTION [None]
